FAERS Safety Report 9412093 (Version 2)
Quarter: 2013Q3

REPORT INFORMATION
  Report Type: Spontaneous
  Country: US (occurrence: US)
  Receive Date: 20130722
  Receipt Date: 20130723
  Transmission Date: 20140515
  Serious: Yes (Other)
  Sender: FDA-Public Use
  Company Number: US-BAYER-2013-088197

PATIENT
  Sex: Female

DRUGS (1)
  1. STIVARGA [Suspect]

REACTIONS (1)
  - Haematuria [None]
